FAERS Safety Report 5399638-7 (Version None)
Quarter: 2007Q3

REPORT INFORMATION
  Report Type: 
  Country: None (occurrence: None)
  Receive Date: 20070727
  Receipt Date: 20070716
  Transmission Date: 20080115
  Serious: Yes (Other)
  Sender: FDA-Public Use
  Company Number: FR-PFIZER INC-2007051043

PATIENT
  Age: 42 Year
  Sex: Male

DRUGS (2)
  1. VIRACEPT [Suspect]
  2. ZERIT [Concomitant]

REACTIONS (1)
  - ASCITES [None]
